FAERS Safety Report 8886119 (Version 1)
Quarter: 2012Q4

REPORT INFORMATION
  Report Type: 
  Country: CN (occurrence: CN)
  Receive Date: 20121105
  Receipt Date: 20121105
  Transmission Date: 20130627
  Serious: Yes (Other)
  Sender: FDA-Public Use
  Company Number: CN-ROCHE-1121041

PATIENT
  Sex: Male
  Weight: 55 kg

DRUGS (2)
  1. CEFTRIAXONE SODIUM [Suspect]
     Indication: MENINGITIS
     Route: 041
     Dates: start: 20100509, end: 20100513
  2. SULTAMICILLIN [Concomitant]
     Indication: MENINGITIS
     Route: 041
     Dates: start: 20100510, end: 20100513

REACTIONS (1)
  - Hepatic lesion [Recovering/Resolving]
